APPROVED DRUG PRODUCT: TINIDAZOLE
Active Ingredient: TINIDAZOLE
Strength: 500MG
Dosage Form/Route: TABLET;ORAL
Application: A202044 | Product #002 | TE Code: AB
Applicant: CHARTWELL RX SCIENCES LLC
Approved: Apr 30, 2012 | RLD: No | RS: No | Type: RX